FAERS Safety Report 23779220 (Version 1)
Quarter: 2024Q2

REPORT INFORMATION
  Report Type: Spontaneous
  Country: RO (occurrence: RO)
  Receive Date: 20240424
  Receipt Date: 20240424
  Transmission Date: 20240715
  Serious: Yes (Other)
  Sender: FDA-Public Use
  Company Number: RO-PFIZER INC-PV202400045041

PATIENT
  Age: 56 Year
  Sex: Female

DRUGS (15)
  1. ZOLEDRONIC ACID [Suspect]
     Active Substance: ZOLEDRONIC ACID
     Indication: Product used for unknown indication
     Dosage: 4 MG, CYCLICAL, TOTAL DOSE INTRAVENOUS DAY 1, REPEATED CYCLE EVERY 84 DAYS
     Route: 042
     Dates: start: 202106
  2. FULVESTRANT [Suspect]
     Active Substance: FULVESTRANT
     Indication: Product used for unknown indication
     Dosage: 500 MG, CYCLICAL, 1 INTRAMUSCULAR INJECTION EVERY 28 DAYS, 1 INTRAMUSCULAR INJECTION EVERY 28 DAYS
     Route: 030
     Dates: start: 202106
  3. IBRANCE [Suspect]
     Active Substance: PALBOCICLIB
     Indication: Product used for unknown indication
     Dosage: 125 MG, CYCLIC (DAY 1-21, 7 DAYS BREAK, REPEAT CYCLE EVERY 28 DAYS)
     Route: 048
     Dates: start: 202106
  4. NOREPINEPHRINE [Concomitant]
     Active Substance: NOREPINEPHRINE\NOREPINEPHRINE BITARTRATE
     Dosage: 1500
     Route: 065
     Dates: start: 20220921
  5. NOREPINEPHRINE [Concomitant]
     Active Substance: NOREPINEPHRINE\NOREPINEPHRINE BITARTRATE
     Dosage: 3160
     Route: 065
     Dates: start: 20231204
  6. NOREPINEPHRINE [Concomitant]
     Active Substance: NOREPINEPHRINE\NOREPINEPHRINE BITARTRATE
     Dosage: 1450
     Route: 065
     Dates: start: 20220718
  7. NOREPINEPHRINE [Concomitant]
     Active Substance: NOREPINEPHRINE\NOREPINEPHRINE BITARTRATE
     Dosage: 670
     Route: 065
     Dates: start: 20230201
  8. NOREPINEPHRINE [Concomitant]
     Active Substance: NOREPINEPHRINE\NOREPINEPHRINE BITARTRATE
     Dosage: 1140
     Route: 065
     Dates: start: 20240110
  9. NOREPINEPHRINE [Concomitant]
     Active Substance: NOREPINEPHRINE\NOREPINEPHRINE BITARTRATE
     Dosage: 940
     Route: 065
     Dates: start: 20220311
  10. NOREPINEPHRINE [Concomitant]
     Active Substance: NOREPINEPHRINE\NOREPINEPHRINE BITARTRATE
     Dosage: 840
     Route: 065
     Dates: start: 20220712
  11. NOREPINEPHRINE [Concomitant]
     Active Substance: NOREPINEPHRINE\NOREPINEPHRINE BITARTRATE
     Dosage: 760
     Route: 065
     Dates: start: 20231124
  12. NOREPINEPHRINE [Concomitant]
     Active Substance: NOREPINEPHRINE\NOREPINEPHRINE BITARTRATE
     Dosage: 1100
     Route: 065
     Dates: start: 20220316
  13. NOREPINEPHRINE [Concomitant]
     Active Substance: NOREPINEPHRINE\NOREPINEPHRINE BITARTRATE
     Dosage: 760
     Route: 065
     Dates: start: 20240103
  14. NOREPINEPHRINE [Concomitant]
     Active Substance: NOREPINEPHRINE\NOREPINEPHRINE BITARTRATE
     Dosage: 830
     Route: 065
     Dates: start: 20220914
  15. NOREPINEPHRINE [Concomitant]
     Active Substance: NOREPINEPHRINE\NOREPINEPHRINE BITARTRATE
     Dosage: 1600
     Route: 065
     Dates: start: 20230208

REACTIONS (6)
  - Thrombocytopenia [Unknown]
  - Appetite disorder [Unknown]
  - Mouth ulceration [Unknown]
  - Asthenia [Unknown]
  - Fatigue [Unknown]
  - Anaemia [Unknown]
